FAERS Safety Report 6524537-4 (Version None)
Quarter: 2010Q1

REPORT INFORMATION
  Report Type: 
  Country: None (occurrence: None)
  Receive Date: 20100104
  Receipt Date: 20091228
  Transmission Date: 20100710
  Serious: Yes (Hospitalization, Other)
  Sender: FDA-Public Use
  Company Number: US-ROCHE-633118

PATIENT
  Sex: Male
  Weight: 68 kg

DRUGS (1)
  1. CAPECITABINE [Suspect]
     Dosage: 2 TABLETS BID
     Route: 048
     Dates: start: 20081229, end: 20091127

REACTIONS (4)
  - DIARRHOEA [None]
  - DRUG INEFFECTIVE [None]
  - MALIGNANT NEOPLASM PROGRESSION [None]
  - VOMITING [None]
